FAERS Safety Report 24970969 (Version 3)
Quarter: 2025Q1

REPORT INFORMATION
  Report Type: Spontaneous
  Country: US (occurrence: US)
  Receive Date: 20250214
  Receipt Date: 20250221
  Transmission Date: 20250409
  Serious: No
  Sender: MERZ
  Company Number: US-Merz Pharmaceuticals GmbH-2025020000067

PATIENT

DRUGS (5)
  1. XEOMIN [Suspect]
     Active Substance: INCOBOTULINUMTOXINA
     Indication: Skin cosmetic procedure
     Dosage: 64 INTERNATIONAL UNIT
     Route: 030
  2. XEOMIN [Suspect]
     Active Substance: INCOBOTULINUMTOXINA
     Indication: Skin wrinkling
  3. XEOMIN [Suspect]
     Active Substance: INCOBOTULINUMTOXINA
     Indication: Skin wrinkling
  4. BOTOX [Concomitant]
     Active Substance: ONABOTULINUMTOXINA
  5. DYSPORT [BOTULINUM TOXIN TYPE A HAEMAGGLUTININ COMPLEX] [Concomitant]

REACTIONS (2)
  - Therapeutic response decreased [Unknown]
  - Underdose [Unknown]
